FAERS Safety Report 8369768-6 (Version None)
Quarter: 2012Q2

REPORT INFORMATION
  Report Type: 
  Country: None (occurrence: None)
  Receive Date: 20120518
  Receipt Date: 20120514
  Transmission Date: 20120825
  Serious: Yes (Other)
  Sender: FDA-Public Use
  Company Number: FR-PFIZER INC-2011190245

PATIENT
  Age: 37 Year
  Sex: Female

DRUGS (7)
  1. CYCLOPHOSPHAMIDE [Suspect]
     Indication: BREAST CANCER
     Dosage: 930 MG, ONCE PER CYCLE
     Route: 041
     Dates: start: 20110414, end: 20110414
  2. DENOSUMAB [Concomitant]
     Dosage: UNK
     Dates: start: 20110401
  3. EPIRUBICIN HYDROCHLORIDE [Suspect]
     Indication: BREAST CANCER
     Dosage: 186 MG, ONCE PER CYCLE
     Route: 041
     Dates: start: 20110414, end: 20110414
  4. FLUOROURACIL [Suspect]
     Indication: BREAST CANCER
     Dosage: 930 MG, ONCE PER CYCLE
     Route: 041
     Dates: start: 20110414, end: 20110414
  5. XIA YAO SAN JIA JIAN [Suspect]
     Indication: PROPHYLAXIS
     Dosage: UNK
     Route: 048
     Dates: start: 20110401
  6. MIRENA [Concomitant]
     Indication: CONTRACEPTION
  7. CACIT D3 [Concomitant]
     Dosage: 1 DF, 1X/DAY

REACTIONS (1)
  - CYTOLYTIC HEPATITIS [None]
